FAERS Safety Report 7307204-9 (Version None)
Quarter: 2011Q1

REPORT INFORMATION
  Report Type: 
  Country: None (occurrence: None)
  Receive Date: 20110120
  Receipt Date: 20100621
  Transmission Date: 20110831
  Serious: Yes (Hospitalization)
  Sender: FDA-Public Use
  Company Number: WAES 1006USA03500

PATIENT

DRUGS (1)
  1. INVANZ [Suspect]
     Dosage: IV
     Route: 042

REACTIONS (1)
  - CONVULSION [None]
